FAERS Safety Report 18956160 (Version 1)
Quarter: 2021Q1

REPORT INFORMATION
  Report Type: Report from Study
  Country: US (occurrence: US)
  Receive Date: 20210301
  Receipt Date: 20210301
  Transmission Date: 20210420
  Serious: Yes (Hospitalization)
  Sender: FDA-Public Use
  Company Number: US-VIFOR (INTERNATIONAL) INC.-VIT-2020-00911

PATIENT
  Age: 77 Year
  Sex: Male

DRUGS (19)
  1. ASPIRIN. [Concomitant]
     Active Substance: ASPIRIN
  2. HYDRALAZINE [Concomitant]
     Active Substance: HYDRALAZINE HYDROCHLORIDE
  3. PROBIOTIC [Concomitant]
     Active Substance: PROBIOTICS NOS
  4. ALLEGRA [Concomitant]
     Active Substance: FEXOFENADINE HYDROCHLORIDE
  5. VELTASSA [Suspect]
     Active Substance: PATIROMER
     Route: 048
     Dates: start: 201912
  6. CARVEDILOL. [Concomitant]
     Active Substance: CARVEDILOL
     Dosage: 25 MG IN MORNING AND 75 MG IN EVENING
  7. ISOSORBIDE MONONITRATE. [Concomitant]
     Active Substance: ISOSORBIDE MONONITRATE
  8. TESTOSTERONE. [Concomitant]
     Active Substance: TESTOSTERONE
  9. VELTASSA [Suspect]
     Active Substance: PATIROMER
     Route: 048
     Dates: start: 201912
  10. BENADRYL [Concomitant]
     Active Substance: DIPHENHYDRAMINE HYDROCHLORIDE
  11. EYLEA [Concomitant]
     Active Substance: AFLIBERCEPT
     Indication: EYE DISORDER
  12. OMEPRAZOLE. [Concomitant]
     Active Substance: OMEPRAZOLE
  13. VELTASSA [Suspect]
     Active Substance: PATIROMER
     Indication: HYPERKALAEMIA
     Route: 048
     Dates: start: 20190130, end: 201909
  14. MULTIVITAMIN [Concomitant]
     Active Substance: VITAMINS
  15. VITAMIN AREDS [Concomitant]
     Indication: EYE DISORDER
     Dosage: 2 FOR EYE.
  16. PENICILLIN [Concomitant]
     Active Substance: PENICILLIN
  17. SIMVASTATIN. [Concomitant]
     Active Substance: SIMVASTATIN
  18. LASIX [Concomitant]
     Active Substance: FUROSEMIDE
     Dosage: 80 MG IN MORNING AND 80 MG IN EVENING
  19. OTC MUCINEX [Concomitant]

REACTIONS (4)
  - Cough [Not Recovered/Not Resolved]
  - Atrioventricular block [Unknown]
  - Inability to afford medication [Unknown]
  - Product solubility abnormal [Unknown]

NARRATIVE: CASE EVENT DATE: 2019
